FAERS Safety Report 6581503-0 (Version None)
Quarter: 2010Q1

REPORT INFORMATION
  Report Type: 
  Country: None (occurrence: None)
  Receive Date: 20100215
  Receipt Date: 20100205
  Transmission Date: 20100710
  Serious: Yes (Hospitalization)
  Sender: FDA-Public Use
  Company Number: B0633260A

PATIENT
  Age: 23 Year
  Sex: Female

DRUGS (11)
  1. LAMICTAL [Suspect]
     Indication: EPILEPTIC PSYCHOSIS
     Route: 065
  2. ABILIFY [Suspect]
     Indication: HALLUCINATION
     Route: 065
  3. ABILIFY [Suspect]
     Route: 065
  4. ABILIFY [Suspect]
     Route: 065
  5. RIVOTRIL [Suspect]
     Indication: HALLUCINATION
     Route: 065
  6. IMOVANE [Suspect]
     Indication: DRUG USE FOR UNKNOWN INDICATION
     Route: 065
  7. APODORM [Suspect]
     Indication: DRUG USE FOR UNKNOWN INDICATION
     Route: 065
  8. SEROQUEL [Suspect]
     Indication: DRUG USE FOR UNKNOWN INDICATION
     Route: 048
  9. ZIPRASIDONE HCL [Concomitant]
  10. SERTRALINE HCL [Concomitant]
  11. OLANZAPINE [Concomitant]

REACTIONS (3)
  - MENTAL STATUS CHANGES [None]
  - NAUSEA [None]
  - VOMITING [None]
